FAERS Safety Report 4780383-3 (Version None)
Quarter: 2005Q3

REPORT INFORMATION
  Report Type: 
  Country: None (occurrence: None)
  Receive Date: 20050926
  Receipt Date: 20050915
  Transmission Date: 20060218
  Serious: Yes (Other)
  Sender: FDA-Public Use
  Company Number: 2005-09-0963

PATIENT
  Age: 43 Year
  Sex: Male
  Weight: 70 kg

DRUGS (2)
  1. DIPROSPAN (BETAMETHASONE SODIUM PHOSPHATE/DIPROPIONA INJECTABLE SUSPEN [Suspect]
     Indication: RHINITIS ALLERGIC
     Dosage: 1ML INTRAMUSCULAR
     Route: 030
     Dates: start: 20041005, end: 20041005
  2. CIRRUS (CETIRIZINE/PSEUDOEPHEDRINE) CAPSULES [Suspect]
     Indication: RHINITIS SEASONAL
     Dosage: BID ORAL
     Route: 048
     Dates: start: 20041005, end: 20041015

REACTIONS (4)
  - ARTHRALGIA [None]
  - ASEPTIC NECROSIS BONE [None]
  - DIFFICULTY IN WALKING [None]
  - PAIN IN EXTREMITY [None]
